FAERS Safety Report 4418426-9 (Version None)
Quarter: 2004Q3

REPORT INFORMATION
  Report Type: 
  Country: None (occurrence: None)
  Receive Date: 20040809
  Receipt Date: 20040423
  Transmission Date: 20050211
  Serious: Yes (Hospitalization)
  Sender: FDA-Public Use
  Company Number: US-GLAXOSMITHKLINE-A0508338A

PATIENT

DRUGS (1)
  1. PAXIL CR [Suspect]

REACTIONS (1)
  - AGITATION [None]
